FAERS Safety Report 22333130 (Version 1)
Quarter: 2023Q2

REPORT INFORMATION
  Report Type: Spontaneous
  Country: US (occurrence: None)
  Receive Date: 20230517
  Receipt Date: 20230517
  Transmission Date: 20230721
  Serious: Yes (Other)
  Sender: FDA-Public Use
  Company Number: US-Unichem Pharmaceuticals (USA) Inc-UCM202305-000576

PATIENT
  Age: 49 Year
  Sex: Male

DRUGS (1)
  1. AMIODARONE HYDROCHLORIDE [Suspect]
     Active Substance: AMIODARONE HYDROCHLORIDE
     Indication: Atrial fibrillation
     Dosage: UNKNOWN

REACTIONS (2)
  - Thyrotoxic crisis [Recovering/Resolving]
  - Drug ineffective for unapproved indication [Unknown]
